FAERS Safety Report 5487985-X (Version None)
Quarter: 2007Q4

REPORT INFORMATION
  Report Type: 
  Country: None (occurrence: None)
  Receive Date: 20071017
  Receipt Date: 20071005
  Transmission Date: 20080405
  Serious: Yes (Death, Hospitalization)
  Sender: FDA-Public Use
  Company Number: JP-AMGEN-US215510

PATIENT
  Sex: Female
  Weight: 33 kg

DRUGS (13)
  1. ENBREL [Suspect]
     Indication: RHEUMATOID ARTHRITIS
     Route: 058
     Dates: start: 20050517
  2. MEDROL [Suspect]
     Indication: INFLAMMATION
     Route: 048
     Dates: start: 20040826, end: 20060501
  3. MEDROL [Suspect]
     Dosage: UNKNOWN
  4. PREDONINE [Suspect]
     Indication: INFLAMMATION
     Route: 048
     Dates: start: 20031125, end: 20060501
  5. PREDONINE [Suspect]
     Dosage: UNKNOWN
  6. THYRADIN [Suspect]
     Indication: HYPOTHYROIDISM
     Dosage: 0.5 DF/DAY
     Route: 048
     Dates: start: 20051217
  7. LANSOPRAZOLE [Concomitant]
     Indication: REFLUX OESOPHAGITIS
     Route: 048
     Dates: start: 20050827
  8. ZOLPIDEM TARTRATE [Concomitant]
     Dosage: UNKNOWN
     Route: 048
  9. SELBEX [Concomitant]
     Indication: GASTRITIS
     Route: 048
     Dates: start: 20060210
  10. LOXONIN [Concomitant]
     Indication: INFLAMMATION
     Route: 048
     Dates: start: 20060210
  11. BIOFERMIN [Concomitant]
     Route: 048
     Dates: start: 20060312
  12. BIOFERMIN [Concomitant]
     Route: 058
     Dates: start: 20060214
  13. FAMOTIDINE [Concomitant]
     Dosage: UNKNOWN
     Route: 048

REACTIONS (1)
  - THALAMUS HAEMORRHAGE [None]
